FAERS Safety Report 24234916 (Version 1)
Quarter: 2024Q3

REPORT INFORMATION
  Report Type: Spontaneous
  Country: US (occurrence: None)
  Receive Date: 20240821
  Receipt Date: 20240821
  Transmission Date: 20241017
  Serious: Yes (Hospitalization)
  Sender: Public
  Company Number: None

PATIENT
  Age: 60 Year
  Sex: Female

DRUGS (11)
  1. TEZSPIRE [Suspect]
     Active Substance: TEZEPELUMAB-EKKO
     Indication: Asthma
     Dates: start: 20240630
  2. HUMALOG [Concomitant]
     Active Substance: INSULIN LISPRO
  3. HYDROCHLOROTHIAZIDE [Concomitant]
  4. JANUMET [Concomitant]
  5. LANTUS SOLOSTAR PEN INJECTION [Concomitant]
  6. metoprolol er [Concomitant]
  7. PREDNISONE [Concomitant]
     Active Substance: PREDNISONE
  8. SIMVASTATIN [Concomitant]
  9. MONTELUKAST [Concomitant]
  10. BREZTRI INHALER [Concomitant]
  11. ALBUTEROL HFA INHALER [Concomitant]

REACTIONS (2)
  - Blood glucose decreased [None]
  - Asthenia [None]

NARRATIVE: CASE EVENT DATE: 20240817
